FAERS Safety Report 7436301 (Version 4)
Quarter: 2013Q4

REPORT INFORMATION
  Report Type: Spontaneous
  Country: US (occurrence: US)
  Receive Date: 20100625
  Receipt Date: 20131126
  Transmission Date: 20140711
  Serious: Yes (Death, Hospitalization)
  Sender: FDA-Public Use
  Company Number: US-ALEXION-A201000705

PATIENT
  Age: 36 Year
  Sex: Female

DRUGS (2)
  1. SOLIRIS 300MG [Suspect]
     Indication: PAROXYSMAL NOCTURNAL HAEMOGLOBINURIA
     Dosage: 600 MG QWK
     Route: 042
     Dates: start: 20100201, end: 201002
  2. SOLIRIS 300MG [Suspect]
     Dosage: 900 MG Q2WKS
     Route: 042
     Dates: start: 20100301

REACTIONS (7)
  - Death [Fatal]
  - Vaginal haemorrhage [Not Recovered/Not Resolved]
  - Infrequent bowel movements [Unknown]
  - Abdominal pain [Unknown]
  - Malaise [Unknown]
  - Blood iron increased [Unknown]
  - Antibody test positive [Unknown]
